FAERS Safety Report 24118078 (Version 3)
Quarter: 2024Q4

REPORT INFORMATION
  Report Type: Spontaneous
  Country: IT (occurrence: IT)
  Receive Date: 20240722
  Receipt Date: 20241227
  Transmission Date: 20250115
  Serious: Yes (Hospitalization, Other)
  Sender: AUROBINDO
  Company Number: IT-MLMSERVICE-20240705-PI124837-00215-1

PATIENT
  Age: 14 Year
  Sex: Male

DRUGS (1)
  1. MESALAMINE [Suspect]
     Active Substance: MESALAMINE
     Indication: Colitis ulcerative
     Dosage: 800 MGS THREE TIMES A DAY
     Route: 065

REACTIONS (2)
  - Myopericarditis [Recovered/Resolved]
  - Mitral valve incompetence [Recovered/Resolved]
